FAERS Safety Report 8180980-1 (Version None)
Quarter: 2012Q1

REPORT INFORMATION
  Report Type: 
  Country: None (occurrence: None)
  Receive Date: 20120302
  Receipt Date: 20120227
  Transmission Date: 20120608
  Serious: No
  Sender: FDA-Public Use
  Company Number: US-BAYER-2012-019877

PATIENT
  Sex: Female

DRUGS (1)
  1. AVELOX [Suspect]
     Indication: KIDNEY INFECTION
     Dosage: 400 MG, QD
     Route: 048

REACTIONS (1)
  - NAUSEA [None]
